FAERS Safety Report 5887762-1 (Version None)
Quarter: 2008Q3

REPORT INFORMATION
  Report Type: 
  Country: None (occurrence: None)
  Receive Date: 20080916
  Receipt Date: 20080822
  Transmission Date: 20090109
  Serious: Yes (Hospitalization)
  Sender: FDA-Public Use
  Company Number: 2008AP002131

PATIENT
  Age: 60 Year
  Sex: Female

DRUGS (1)
  1. OFLOXACIN [Suspect]
     Indication: EAR INFECTION
     Dosage: 3 GTT;BID;OTIC
     Dates: start: 20080801, end: 20080801

REACTIONS (1)
  - PAIN IN EXTREMITY [None]
